FAERS Safety Report 11289081 (Version 2)
Quarter: 2018Q1

REPORT INFORMATION
  Report Type: Spontaneous
  Country: US (occurrence: US)
  Receive Date: 20150721
  Receipt Date: 20180320
  Transmission Date: 20180508
  Serious: Yes (Death, Hospitalization, Other)
  Sender: FDA-Public Use
  Company Number: PHHY2015US085230

PATIENT
  Age: 67 Year
  Sex: Male
  Weight: 73.3 kg

DRUGS (1)
  1. SANDOSTATIN LAR DEPOT [Suspect]
     Active Substance: OCTREOTIDE ACETATE
     Indication: CARCINOID TUMOUR OF THE SMALL BOWEL
     Dosage: 60 MG, UNK
     Route: 030
     Dates: start: 20140513, end: 20150512

REACTIONS (5)
  - Impaired gastric emptying [Fatal]
  - Decreased appetite [Unknown]
  - Muscular weakness [Fatal]
  - Weight decreased [Unknown]
  - Muscular weakness [Recovered/Resolved]

NARRATIVE: CASE EVENT DATE: 20150512
